FAERS Safety Report 25028609 (Version 1)
Quarter: 2025Q1

REPORT INFORMATION
  Report Type: Spontaneous
  Country: PL (occurrence: PL)
  Receive Date: 20250302
  Receipt Date: 20250302
  Transmission Date: 20250409
  Serious: Yes (Death)
  Sender: AUROBINDO
  Company Number: PL-ROCHE-10000078908

PATIENT
  Age: 69 Year
  Sex: Female
  Weight: 50 kg

DRUGS (11)
  1. CARBOPLATIN [Suspect]
     Active Substance: CARBOPLATIN
     Indication: Small cell lung cancer extensive stage
     Route: 065
     Dates: start: 20220707
  2. ETOPOSIDE [Suspect]
     Active Substance: ETOPOSIDE
     Indication: Small cell lung cancer extensive stage
     Route: 042
     Dates: start: 20220707
  3. TECENTRIQ [Suspect]
     Active Substance: ATEZOLIZUMAB
     Indication: Small cell lung cancer extensive stage
     Route: 042
     Dates: start: 20220707
  4. TECENTRIQ [Suspect]
     Active Substance: ATEZOLIZUMAB
     Route: 042
  5. BISOPROLOL [Concomitant]
     Active Substance: BISOPROLOL
     Indication: Prophylaxis
     Dosage: 5 MILLIGRAM, ONCE A DAY
     Route: 065
  6. LEVETIRACETAM [Concomitant]
     Active Substance: LEVETIRACETAM
     Indication: Prophylaxis
     Dosage: UNK UNK, ONCE A DAY
     Route: 065
  7. Esogno [Concomitant]
     Indication: Product used for unknown indication
     Route: 065
     Dates: start: 20220709
  8. TORECAN [Concomitant]
     Active Substance: THIETHYLPERAZINE MALATE
     Indication: Prophylaxis
     Route: 065
     Dates: start: 20220709
  9. RAMIPRIL [Concomitant]
     Active Substance: RAMIPRIL
     Indication: Prophylaxis
     Dosage: 10 MILLIGRAM, ONCE A DAY
     Route: 065
  10. ESTAZOLAM [Concomitant]
     Active Substance: ESTAZOLAM
     Indication: Prophylaxis
     Dosage: 2 MILLIGRAM, ONCE A DAY
     Route: 065
     Dates: start: 20230316
  11. LOPERAMIDE [Concomitant]
     Active Substance: LOPERAMIDE
     Indication: Product used for unknown indication
     Route: 065
     Dates: start: 20220709

REACTIONS (1)
  - Asthenia [Fatal]

NARRATIVE: CASE EVENT DATE: 20240722
